FAERS Safety Report 8019412-2 (Version None)
Quarter: 2012Q1

REPORT INFORMATION
  Report Type: 
  Country: None (occurrence: None)
  Receive Date: 20120103
  Receipt Date: 20111227
  Transmission Date: 20120608
  Serious: Yes (Hospitalization)
  Sender: FDA-Public Use
  Company Number: PHHY2011US65690

PATIENT
  Sex: Female

DRUGS (11)
  1. EXJADE [Suspect]
     Indication: MYELODYSPLASTIC SYNDROME
     Dosage: 2500 MG, QD
     Route: 048
  2. AMOXICILLIN [Concomitant]
  3. PROCTO-GLYVENOL [Concomitant]
  4. EXJADE [Suspect]
     Indication: ANAEMIA
  5. DIPHENOXYLATE HCL AND ATROPINE SULFATE [Concomitant]
  6. NITROFURANTOIN [Concomitant]
  7. VITAMIN D [Concomitant]
  8. NAPROBENE [Concomitant]
  9. AVELOX [Concomitant]
  10. CYCLOBENZAPRINE [Concomitant]
  11. METRONIDAZOLE [Concomitant]

REACTIONS (7)
  - GASTROENTERITIS [None]
  - DIVERTICULUM [None]
  - DIVERTICULITIS [None]
  - SYNCOPE [None]
  - RENAL FAILURE ACUTE [None]
  - DIARRHOEA [None]
  - DEHYDRATION [None]
